FAERS Safety Report 5382653-7 (Version None)
Quarter: 2007Q3

REPORT INFORMATION
  Report Type: 
  Country: None (occurrence: None)
  Receive Date: 20070703
  Receipt Date: 20070703
  Transmission Date: 20080115
  Serious: No
  Sender: FDA-Public Use
  Company Number: None

PATIENT
  Age: 58 Year
  Sex: Male
  Weight: 65.7716 kg

DRUGS (1)
  1. FINASTERIDE [Suspect]
     Indication: BENIGN PROSTATIC HYPERPLASIA
     Dosage: 10MG DAILY PO
     Route: 048
     Dates: start: 20061120, end: 20061220

REACTIONS (2)
  - CATARACT [None]
  - VISUAL ACUITY REDUCED [None]
